FAERS Safety Report 8832537 (Version 2)
Quarter: 2012Q4

REPORT INFORMATION
  Report Type: 
  Country: US (occurrence: US)
  Receive Date: 20121010
  Receipt Date: 20121022
  Transmission Date: 20130627
  Serious: No
  Sender: FDA-Public Use
  Company Number: US-009507513-1210USA004321

PATIENT
  Sex: Male

DRUGS (2)
  1. PEGINTRON [Suspect]
     Indication: HEPATITIS C
     Dosage: UNK
     Dates: start: 20120928
  2. REBETOL [Suspect]
     Indication: HEPATITIS C
     Dosage: UNK
     Dates: start: 20120928

REACTIONS (6)
  - Injection site reaction [Not Recovered/Not Resolved]
  - Pyrexia [Unknown]
  - Dizziness [Unknown]
  - Somnolence [Unknown]
  - Weight decreased [Unknown]
  - Feeling abnormal [Unknown]
